FAERS Safety Report 6375379-4 (Version None)
Quarter: 2009Q3

REPORT INFORMATION
  Report Type: 
  Country: None (occurrence: None)
  Receive Date: 20090924
  Receipt Date: 20090914
  Transmission Date: 20100115
  Serious: Yes (Other)
  Sender: FDA-Public Use
  Company Number: PHHY2009AR39842

PATIENT
  Sex: Male

DRUGS (6)
  1. EXJADE [Suspect]
     Indication: SICKLE CELL ANAEMIA
     Dosage: 1500 MG/DAY
     Route: 065
     Dates: start: 20090601, end: 20090821
  2. EXJADE [Suspect]
     Indication: BLOOD IRON INCREASED
  3. CARVEDILOL [Concomitant]
     Dosage: 6.25 MG, BID
     Route: 065
  4. AMLODIPINE [Concomitant]
     Dosage: 10 MG/DAY
     Route: 065
  5. FOLIC ACID [Concomitant]
     Dosage: 10 MG/DAY
     Route: 065
  6. TRAMADOL [Concomitant]
     Indication: BONE PAIN
     Route: 065

REACTIONS (7)
  - DERMATITIS ALLERGIC [None]
  - GENERALISED OEDEMA [None]
  - PNEUMONIA [None]
  - PRURITUS [None]
  - RASH ERYTHEMATOUS [None]
  - RASH GENERALISED [None]
  - SWELLING FACE [None]
